FAERS Safety Report 5848105-2 (Version None)
Quarter: 2008Q3

REPORT INFORMATION
  Report Type: 
  Country: None (occurrence: None)
  Receive Date: 20080814
  Receipt Date: 20080804
  Transmission Date: 20090109
  Serious: Yes (Hospitalization, Other)
  Sender: FDA-Public Use
  Company Number: 2008-02572

PATIENT
  Age: 78 Year
  Sex: Female
  Weight: 48 kg

DRUGS (3)
  1. VELCADE [Suspect]
     Indication: MULTIPLE MYELOMA
     Dosage: 1 MG/M2
     Route: 042
     Dates: start: 20080505, end: 20080606
  2. DEXAMETHASONE TAB [Suspect]
     Indication: MULTIPLE MYELOMA
  3. AUGMENTIN '125' [Suspect]
     Indication: OSTEONECROSIS
     Dosage: ORAL
     Route: 048
     Dates: start: 20080615, end: 20080711

REACTIONS (2)
  - CLOSTRIDIUM DIFFICILE COLITIS [None]
  - OSTEONECROSIS [None]
